FAERS Safety Report 11299087 (Version 1)
Quarter: 2015Q3

REPORT INFORMATION
  Report Type: Spontaneous
  Country: US (occurrence: US)
  Receive Date: 20150722
  Receipt Date: 20150722
  Transmission Date: 20151125
  Serious: No
  Sender: FDA-Public Use
  Company Number: US-ELI_LILLY_AND_COMPANY-US201207002858

PATIENT
  Sex: Male

DRUGS (2)
  1. THYROID [Concomitant]
     Active Substance: LEVOTHYROXINE\LIOTHYRONINE
  2. HUMATROPE [Suspect]
     Active Substance: SOMATROPIN

REACTIONS (3)
  - Chills [Unknown]
  - Palpitations [Unknown]
  - Temperature intolerance [Unknown]
